FAERS Safety Report 25836764 (Version 1)
Quarter: 2025Q3

REPORT INFORMATION
  Report Type: Spontaneous
  Country: US (occurrence: US)
  Receive Date: 20250923
  Receipt Date: 20250923
  Transmission Date: 20251021
  Serious: No
  Sender: PFIZER
  Company Number: US-PFIZER INC-PV202500114115

PATIENT
  Age: 25 Year
  Sex: Female

DRUGS (3)
  1. RIMEGEPANT [Suspect]
     Active Substance: RIMEGEPANT
     Indication: Migraine
  2. RIMEGEPANT [Suspect]
     Active Substance: RIMEGEPANT
     Dosage: UNK, DAILY
  3. UBRELVY [Suspect]
     Active Substance: UBROGEPANT

REACTIONS (3)
  - Nausea [Unknown]
  - Vomiting [Unknown]
  - Irritability [Unknown]
